FAERS Safety Report 5033247-4 (Version None)
Quarter: 2006Q2

REPORT INFORMATION
  Report Type: 
  Country: None (occurrence: None)
  Receive Date: 20060620
  Receipt Date: 20060607
  Transmission Date: 20061013
  Serious: Yes (Hospitalization)
  Sender: FDA-Public Use
  Company Number: 110887ISR

PATIENT
  Age: 10 Year
  Sex: Male

DRUGS (8)
  1. CARBOPLATIN [Suspect]
     Indication: PRIMITIVE NEUROECTODERMAL TUMOUR
  2. ETOPOSIDE [Suspect]
     Indication: PRIMITIVE NEUROECTODERMAL TUMOUR
  3. THIOTEPA [Suspect]
     Indication: PRIMITIVE NEUROECTODERMAL TUMOUR
  4. COTRIMOXAZOLE (TRIMETHOPRIM/SULFAMETHOXAZOLE) [Concomitant]
  5. ACYCLOVIR [Concomitant]
  6. METRONIDAZOLE [Concomitant]
  7. FLUCONAZOLE [Concomitant]
  8. AMPHOTERICIN B [Concomitant]

REACTIONS (8)
  - ABDOMINAL DISTENSION [None]
  - ASPERGILLOSIS [None]
  - CLOSTRIDIUM DIFFICILE COLITIS [None]
  - CONSTIPATION [None]
  - ENTEROCOLITIS [None]
  - GASTROINTESTINAL INFECTION [None]
  - GASTROINTESTINAL NECROSIS [None]
  - PNEUMATOSIS INTESTINALIS [None]
